FAERS Safety Report 22193008 (Version 1)
Quarter: 2023Q2

REPORT INFORMATION
  Report Type: Spontaneous
  Country: US (occurrence: US)
  Receive Date: 20230410
  Receipt Date: 20230410
  Transmission Date: 20230721
  Serious: No
  Sender: FDA-Public Use
  Company Number: US-THEA-2022002153

PATIENT
  Sex: Female

DRUGS (1)
  1. ZIOPTAN [Suspect]
     Active Substance: TAFLUPROST
     Indication: Glaucoma
     Dosage: BOTH EYES AT BEDTIME
     Route: 047
     Dates: start: 2017

REACTIONS (3)
  - Product temperature excursion issue [Unknown]
  - Vision blurred [Unknown]
  - Poor quality product administered [Unknown]
